FAERS Safety Report 7492823-X (Version None)
Quarter: 2011Q2

REPORT INFORMATION
  Report Type: 
  Country: None (occurrence: None)
  Receive Date: 20110512
  Receipt Date: 20110509
  Transmission Date: 20111010
  Serious: Yes (Other)
  Sender: FDA-Public Use
  Company Number: DSA_44918_2011

PATIENT
  Sex: Male

DRUGS (7)
  1. LITHIUM CARBONATE [Concomitant]
  2. COGENTIN [Concomitant]
  3. REMERON [Concomitant]
  4. TOCOPHEROL CONCENTRATE CAP [Concomitant]
  5. CELEXA [Concomitant]
  6. XENAZINE [Suspect]
     Indication: DYSKINESIA
     Dosage: 50, 25  MG, BID, ORAL
     Route: 048
     Dates: start: 20110209, end: 20110404
  7. XENAZINE [Suspect]
     Indication: DYSKINESIA
     Dosage: 50, 25  MG, BID, ORAL
     Route: 048
     Dates: start: 20100915, end: 20110208

REACTIONS (1)
  - WEIGHT DECREASED [None]
